FAERS Safety Report 11253047 (Version 1)
Quarter: 2015Q3

REPORT INFORMATION
  Report Type: Spontaneous
  Country: GB (occurrence: None)
  Receive Date: 20150707
  Receipt Date: 20150707
  Transmission Date: 20151125
  Serious: Yes (Death, Life-Threatening)
  Sender: FDA-Public Use
  Company Number: GB-H14001-15-00982

PATIENT
  Age: 87 Year
  Sex: Female

DRUGS (16)
  1. CO-AMOXICLAV (AUGMENTIN /00756801/) (AMOXICILLIN SODIUM, CLAVULANATE POTASSIUM) [Concomitant]
  2. IPRATROPIUM [Concomitant]
     Active Substance: IPRATROPIUM
  3. ZOPICLONE [Concomitant]
     Active Substance: ZOPICLONE
  4. CODEINE [Concomitant]
     Active Substance: CODEINE
  5. SERETIDE [Concomitant]
     Active Substance: FLUTICASONE FUROATE\SALMETEROL XINAFOATE
  6. VANCOMYCIN (VANCOMYCIN) (UNKNOWN) (VANCOMYCIN) [Suspect]
     Active Substance: VANCOMYCIN
     Indication: ENDOCARDITIS
     Dosage: 1500 MG (750 MG, 2 IN 1 D),INTRAVENOUS (NOT OTHERWISE SPECIFIED)
     Route: 042
     Dates: start: 20150606, end: 20150607
  7. FONDAPARINUX SODIUM. [Concomitant]
     Active Substance: FONDAPARINUX SODIUM
  8. FOLIC ACID. [Concomitant]
     Active Substance: FOLIC ACID
  9. SALBUTAMOL [Concomitant]
     Active Substance: ALBUTEROL
  10. LORAZEPAM. [Concomitant]
     Active Substance: LORAZEPAM
  11. TAZOCIN (PIP/TAZO) (PIPERACILLIN SODIUM, TAZOBACTAM SODIUM) [Concomitant]
  12. ASPIRIN (ACETYLSALICYLIC ACID) [Concomitant]
     Active Substance: ASPIRIN
  13. OMEPRAZOLE. [Concomitant]
     Active Substance: OMEPRAZOLE
  14. PARACETAMOL [Concomitant]
     Active Substance: ACETAMINOPHEN
  15. AMOXICILLIN. [Concomitant]
     Active Substance: AMOXICILLIN
  16. TICAGRELOR [Concomitant]
     Active Substance: TICAGRELOR

REACTIONS (3)
  - Haematuria [None]
  - Acute kidney injury [None]
  - Urine output decreased [None]

NARRATIVE: CASE EVENT DATE: 20150607
